FAERS Safety Report 5868809-5 (Version None)
Quarter: 2008Q3

REPORT INFORMATION
  Report Type: 
  Country: None (occurrence: None)
  Receive Date: 20080903
  Receipt Date: 20080902
  Transmission Date: 20090109
  Serious: Yes (Hospitalization)
  Sender: FDA-Public Use
  Company Number: PHEH1995US03505

PATIENT
  Sex: Female
  Weight: 74.5 kg

DRUGS (7)
  1. SANDIMMUNE [Suspect]
     Route: 048
     Dates: start: 19950817
  2. PREDNISONE TAB [Concomitant]
     Route: 048
  3. FOLIC ACID [Concomitant]
     Route: 048
  4. CARAFATE [Concomitant]
     Route: 048
  5. MAGNESIUM OXIDE (MAGNESIUM OXIDE) [Concomitant]
     Route: 048
  6. COLACE (DOCUSATE SODIUM) [Concomitant]
     Route: 048
  7. MYCELEX [Concomitant]
     Route: 048

REACTIONS (6)
  - ALANINE AMINOTRANSFERASE INCREASED [None]
  - ASPARTATE AMINOTRANSFERASE INCREASED [None]
  - BILIRUBIN CONJUGATED INCREASED [None]
  - BLOOD ALKALINE PHOSPHATASE INCREASED [None]
  - CARDIAC FAILURE CONGESTIVE [None]
  - PLEURAL EFFUSION [None]
